FAERS Safety Report 9419977 (Version 1)
Quarter: 2013Q3

REPORT INFORMATION
  Report Type: Spontaneous
  Country: US (occurrence: None)
  Receive Date: 20130724
  Receipt Date: 20130724
  Transmission Date: 20140515
  Serious: No
  Sender: FDA-Public Use
  Company Number: None

PATIENT
  Age: 62 Year
  Sex: Female
  Weight: 50.5 kg

DRUGS (1)
  1. LEVAQUIN [Suspect]
     Dosage: 500 MG DAILY IV
     Route: 042
     Dates: start: 20130709, end: 20130709

REACTIONS (1)
  - Infusion site rash [None]
